FAERS Safety Report 4675031-7 (Version None)
Quarter: 2005Q2

REPORT INFORMATION
  Report Type: 
  Country: None (occurrence: None)
  Receive Date: 20050526
  Receipt Date: 20050513
  Transmission Date: 20051028
  Serious: Yes (Hospitalization, Disabling, Other)
  Sender: FDA-Public Use
  Company Number: USA-2005-0018906

PATIENT
  Age: 53 Year
  Sex: Female
  Weight: 55.3 kg

DRUGS (3)
  1. OXYCONTIN [Suspect]
     Indication: PAIN
     Dosage: SEE IMAGE
  2. CELEBREX [Concomitant]
  3. COMBIVENT [Concomitant]

REACTIONS (4)
  - BRAIN OEDEMA [None]
  - DRUG WITHDRAWAL CONVULSIONS [None]
  - DRUG WITHDRAWAL SYNDROME [None]
  - LEUKOENCEPHALOPATHY [None]
